FAERS Safety Report 15363161 (Version 3)
Quarter: 2018Q4

REPORT INFORMATION
  Report Type: Report from Study
  Country: US (occurrence: US)
  Receive Date: 20180907
  Receipt Date: 20181022
  Transmission Date: 20190204
  Serious: Yes (Hospitalization)
  Sender: FDA-Public Use
  Company Number: PHHO2018US010024

PATIENT
  Age: 16 Year
  Sex: Female

DRUGS (10)
  1. MERCAPTOPURINE. [Suspect]
     Active Substance: MERCAPTOPURINE
     Dosage: 50 MG, QD
     Route: 048
     Dates: start: 20180917, end: 20181001
  2. METHOTREXATE. [Suspect]
     Active Substance: METHOTREXATE
     Dosage: 27.5 MG, WEEKLY
     Route: 048
     Dates: start: 20180319, end: 20180826
  3. LINEZOLID. [Concomitant]
     Active Substance: LINEZOLID
     Indication: PYREXIA
     Dosage: 600 MG, BID
     Route: 042
     Dates: start: 20180902
  4. INC424A [Suspect]
     Active Substance: RUXOLITINIB
     Indication: ACUTE LYMPHOCYTIC LEUKAEMIA
     Dosage: 95 MG, QD
     Route: 048
     Dates: start: 20170619
  5. ROCEPHIN [Concomitant]
     Active Substance: CEFTRIAXONE SODIUM
     Indication: PYREXIA
     Dosage: 1 G, BID
     Route: 065
     Dates: start: 20180912
  6. MERCAPTOPURINE. [Suspect]
     Active Substance: MERCAPTOPURINE
     Indication: ACUTE LYMPHOCYTIC LEUKAEMIA
     Dosage: 50 MG, QD
     Route: 048
     Dates: start: 20180312, end: 20180826
  7. VANCOMYCIN [Concomitant]
     Active Substance: VANCOMYCIN
     Dosage: 750 MG, UNK
     Route: 042
     Dates: start: 20180826, end: 20180830
  8. TORADOL [Concomitant]
     Active Substance: KETOROLAC TROMETHAMINE
     Dosage: 15 MG, SINGLE
  9. METHOTREXATE. [Suspect]
     Active Substance: METHOTREXATE
     Indication: ACUTE LYMPHOCYTIC LEUKAEMIA
     Dosage: 27.5 MG, QW
     Route: 048
     Dates: start: 20180319, end: 20180826
  10. PREDNISONE. [Concomitant]
     Active Substance: PREDNISONE
     Indication: ACUTE LYMPHOCYTIC LEUKAEMIA
     Dosage: 38 MG, BID (DAYS 57-61)
     Route: 048
     Dates: start: 20170305

REACTIONS (5)
  - Rash [Unknown]
  - Pyrexia [Recovered/Resolved]
  - Cellulitis [Recovered/Resolved]
  - Acute kidney injury [Recovered/Resolved]
  - Cellulitis [Recovered/Resolved]

NARRATIVE: CASE EVENT DATE: 20180824
